FAERS Safety Report 6634277-9 (Version None)
Quarter: 2010Q1

REPORT INFORMATION
  Report Type: 
  Country: None (occurrence: None)
  Receive Date: 20100315
  Receipt Date: 20100305
  Transmission Date: 20100710
  Serious: Yes (Other)
  Sender: FDA-Public Use
  Company Number: JP-ASTRAZENECA-2010SE10763

PATIENT
  Age: 82 Year
  Sex: Female

DRUGS (2)
  1. MEROPENEM [Suspect]
     Indication: PNEUMONIA
     Route: 042
  2. TARGOCID [Concomitant]

REACTIONS (3)
  - ERYTHROPENIA [None]
  - LEUKOPENIA [None]
  - THROMBOCYTOPENIA [None]
